FAERS Safety Report 14499960 (Version 1)
Quarter: 2018Q1

REPORT INFORMATION
  Report Type: Spontaneous
  Country: DE (occurrence: DE)
  Receive Date: 20180207
  Receipt Date: 20180207
  Transmission Date: 20180509
  Serious: Yes (Hospitalization)
  Sender: FDA-Public Use
  Company Number: DE-MYLANLABS-2018M1007742

PATIENT
  Age: 75 Year
  Sex: Female

DRUGS (4)
  1. LAMOTRIGINE. [Suspect]
     Active Substance: LAMOTRIGINE
     Indication: EPILEPSY
     Dosage: 300 MG, QD
     Route: 048
     Dates: start: 201612
  2. RISPERIDONE. [Interacting]
     Active Substance: RISPERIDONE
     Indication: DEMENTIA
     Dosage: 75 MG, QD
     Route: 048
  3. LIORAN [Interacting]
     Active Substance: HERBALS\HOMEOPATHICS\PASSIFLORA INCARNATA FLOWER
     Indication: RESTLESSNESS
     Dosage: 1 DF, QD
     Route: 065
     Dates: start: 20170808, end: 20170827
  4. LIORAN [Interacting]
     Active Substance: HERBALS\HOMEOPATHICS\PASSIFLORA INCARNATA FLOWER
     Indication: SLEEP DISORDER

REACTIONS (5)
  - Fatigue [Recovered/Resolved]
  - Fall [Recovered/Resolved]
  - Drug interaction [Unknown]
  - Gait disturbance [Recovered/Resolved]
  - Gait disturbance [Recovered/Resolved]

NARRATIVE: CASE EVENT DATE: 20170812
